FAERS Safety Report 18455180 (Version 2)
Quarter: 2020Q4

REPORT INFORMATION
  Report Type: Spontaneous
  Country: DE (occurrence: DE)
  Receive Date: 20201102
  Receipt Date: 20201210
  Transmission Date: 20210114
  Serious: Yes (Hospitalization, Other)
  Sender: FDA-Public Use
  Company Number: DE-COLLEGIUM PHARMACEUTICAL, INC.-2020CGM00346

PATIENT
  Age: 81 Year
  Sex: Male

DRUGS (20)
  1. BUPRENORPHINE. [Concomitant]
     Active Substance: BUPRENORPHINE
  2. L-THYROXIN [Concomitant]
     Active Substance: LEVOTHYROXINE SODIUM
  3. BICANORM [Concomitant]
     Active Substance: SODIUM BICARBONATE
  4. RAMIPRIL. [Concomitant]
     Active Substance: RAMIPRIL
  5. TOUJEO [Concomitant]
     Active Substance: INSULIN GLARGINE
  6. CALCIUM EFFERVESCENT [Concomitant]
  7. KEPPRA [Concomitant]
     Active Substance: LEVETIRACETAM
  8. FERRO-SANOL DUODENAL [Concomitant]
     Active Substance: FERROUS GLYCINE SULFATE
  9. SIMVASTATIN. [Concomitant]
     Active Substance: SIMVASTATIN
  10. METOPROLOL. [Concomitant]
     Active Substance: METOPROLOL
  11. MOVICOL [Concomitant]
     Active Substance: POLYETHYLENE GLYCOL 3350\POTASSIUM CHLORIDE\SODIUM BICARBONATE\SODIUM CHLORIDE
  12. PANTOPRAZOL [Concomitant]
     Active Substance: PANTOPRAZOLE SODIUM
  13. APIDRA SOLOSTAR [Concomitant]
     Active Substance: INSULIN GLULISINE
  14. NUCYNTA ER [Suspect]
     Active Substance: TAPENTADOL HYDROCHLORIDE
     Indication: SPINAL PAIN
     Dosage: 100 MG, 2X/DAY
     Route: 048
     Dates: start: 20200825, end: 20200915
  15. NOVAMINSULFON [Concomitant]
     Active Substance: METAMIZOLE
  16. OSTEOTRIOL [Concomitant]
     Active Substance: CALCITRIOL
  17. TOREM [Concomitant]
     Active Substance: TORSEMIDE
  18. TAVOR [Concomitant]
  19. FEBUXOSTAT. [Concomitant]
     Active Substance: FEBUXOSTAT
  20. ASPIRIN. [Concomitant]
     Active Substance: ASPIRIN

REACTIONS (6)
  - Personality change [Unknown]
  - Dysarthria [Unknown]
  - Hypertensive crisis [Recovered/Resolved]
  - Apraxia [Unknown]
  - Epilepsy [Unknown]
  - Gait disturbance [Unknown]

NARRATIVE: CASE EVENT DATE: 2020
